FAERS Safety Report 6051817-1 (Version None)
Quarter: 2009Q1

REPORT INFORMATION
  Report Type: 
  Country: None (occurrence: None)
  Receive Date: 20090121
  Receipt Date: 20090121
  Transmission Date: 20090719
  Serious: No
  Sender: FDA-Public Use
  Company Number: None

PATIENT
  Age: 71 Year
  Sex: Female
  Weight: 70.5 kg

DRUGS (2)
  1. ERTAPENEM 1GM [Suspect]
     Indication: INFECTION
     Dosage: 1GM QDAY IV
     Route: 042
     Dates: start: 20080821, end: 20080822
  2. PRILOSEC [Concomitant]

REACTIONS (1)
  - RASH PRURITIC [None]
